FAERS Safety Report 9315892 (Version 1)
Quarter: 2013Q2

REPORT INFORMATION
  Report Type: Spontaneous
  Country: US (occurrence: US)
  Receive Date: 20130530
  Receipt Date: 20130530
  Transmission Date: 20140414
  Serious: Yes (Other)
  Sender: FDA-Public Use
  Company Number: US-AMGEN-USASP2013037801

PATIENT
  Age: 61 Year
  Sex: Female
  Weight: 88.44 kg

DRUGS (6)
  1. ENBREL [Suspect]
     Indication: PRODUCT USED FOR UNKNOWN INDICATION
     Dosage: 50 MG, QWK
     Route: 058
  2. UNITHROID [Concomitant]
     Dosage: 100 MCG, UNK
     Route: 048
  3. VASOTEC                            /00574902/ [Concomitant]
     Dosage: 10 MG, UNK
     Route: 048
  4. NAPROXEN [Concomitant]
     Dosage: 250 MG, UNK
     Route: 048
  5. MULTIVITAMINS, PLAIN [Concomitant]
     Dosage: UNK
     Route: 048
  6. RESTASIS [Concomitant]
     Dosage: 0.05 %, UNK
     Route: 047

REACTIONS (2)
  - Tooth infection [Unknown]
  - Bronchitis [Unknown]
